FAERS Safety Report 4321051-1 (Version None)
Quarter: 2004Q1

REPORT INFORMATION
  Report Type: 
  Country: None (occurrence: None)
  Receive Date: 20040318
  Receipt Date: 20040311
  Transmission Date: 20041129
  Serious: Yes (Other)
  Sender: FDA-Public Use
  Company Number: DEU-2004-0000772

PATIENT
  Age: 65 Year
  Sex: Female
  Weight: 70 kg

DRUGS (10)
  1. OXYCODONE HCL [Suspect]
     Indication: BACK PAIN
     Dosage: SEE IMAGE
     Route: 048
     Dates: start: 20021002, end: 20021002
  2. OXYCODONE HCL [Suspect]
     Indication: BACK PAIN
     Dosage: SEE IMAGE
     Route: 048
     Dates: start: 20021003
  3. DIGOXIN [Concomitant]
  4. RAMIPRIL [Concomitant]
  5. METOPROLOL TARTRATE [Concomitant]
  6. PROGYNOVA (ESTRADIOL VALERATE0 [Concomitant]
  7. METOCLOPRAMIDE HYDROCHLORIDE [Concomitant]
  8. FOSAMAX [Concomitant]
  9. IDEOS (CALCIUM CARBONATE, COLECALCIFEROL) [Concomitant]
  10. SCANDICAIN ^ASTRA^ (MEPIVACAINE HYDROCHLORIDE) [Concomitant]

REACTIONS (1)
  - BLOOD PRESSURE INCREASED [None]
